FAERS Safety Report 13829663 (Version 3)
Quarter: 2017Q3

REPORT INFORMATION
  Report Type: Spontaneous
  Country: GB (occurrence: GB)
  Receive Date: 20170803
  Receipt Date: 20170928
  Transmission Date: 20171127
  Serious: Yes (Other)
  Sender: FDA-Public Use
  Company Number: GB-BEH-2017082227

PATIENT
  Age: 20 Year
  Sex: Male

DRUGS (4)
  1. BENEFIX [Suspect]
     Active Substance: COAGULATION FACTOR IX RECOMBINANT HUMAN\ISOPROPYL ALCOHOL
     Indication: PROPHYLAXIS
     Dosage: UNK
     Route: 065
     Dates: start: 20170328
  2. IDELVION [Suspect]
     Active Substance: COAGULATION FACTOR IX RECOMBINANT HUMAN
     Indication: FACTOR IX DEFICIENCY
     Dosage: 2000 IU (26IU/KG), QW
     Route: 042
     Dates: start: 20170124, end: 201702
  3. IDELVION [Suspect]
     Active Substance: COAGULATION FACTOR IX RECOMBINANT HUMAN
     Indication: PROPHYLAXIS
     Dosage: 3000 IU(39IU/KG), QW
     Route: 042
     Dates: start: 20170208, end: 20170323
  4. BENEFIX [Suspect]
     Active Substance: COAGULATION FACTOR IX RECOMBINANT HUMAN\ISOPROPYL ALCOHOL
     Indication: FACTOR IX DEFICIENCY
     Dosage: 3000 IU(36IU/KG), BIW
     Route: 065
     Dates: end: 201701

REACTIONS (3)
  - Arthritis [Not Recovered/Not Resolved]
  - Drug ineffective [Recovered/Resolved]
  - Haemophilic arthropathy [Not Recovered/Not Resolved]

NARRATIVE: CASE EVENT DATE: 20170131
